FAERS Safety Report 8262689-9 (Version None)
Quarter: 2012Q1

REPORT INFORMATION
  Report Type: 
  Country: None (occurrence: None)
  Receive Date: 20120327
  Receipt Date: 20110401
  Transmission Date: 20120608
  Serious: Yes (Life-Threatening)
  Sender: FDA-Public Use
  Company Number: PHHY2011US26667

PATIENT
  Age: 50 Year
  Sex: Female
  Weight: 103 kg

DRUGS (1)
  1. GLEEVEC [Suspect]
     Indication: SOFT TISSUE NEOPLASM
     Dosage: 400 MG, DAILY, ORAL
     Route: 048
     Dates: start: 20110228

REACTIONS (7)
  - ALOPECIA [None]
  - RASH GENERALISED [None]
  - BLISTER [None]
  - HYPERSENSITIVITY [None]
  - RASH ERYTHEMATOUS [None]
  - NASOPHARYNGITIS [None]
  - PRURITUS [None]
